FAERS Safety Report 12690170 (Version 1)
Quarter: 2016Q3

REPORT INFORMATION
  Report Type: Report from Study
  Country: ES (occurrence: ES)
  Receive Date: 20160826
  Receipt Date: 20160826
  Transmission Date: 20161109
  Serious: Yes (Hospitalization)
  Sender: FDA-Public Use
  Company Number: ES-ABBVIE-16K-144-1707713-00

PATIENT
  Age: 77 Year
  Sex: Female

DRUGS (2)
  1. DUODOPA [Suspect]
     Active Substance: CARBIDOPA\LEVODOPA
     Dosage: MORNING ODSE: 7.7 ML, CONTINUOS DOSE: 6.5 ML/H, EXTRA DOSE: 5ML
     Route: 050
     Dates: start: 200803
  2. DUODOPA [Suspect]
     Active Substance: CARBIDOPA\LEVODOPA
     Indication: PARKINSON^S DISEASE
     Route: 050
     Dates: start: 200803, end: 200803

REACTIONS (4)
  - Anxiety [Recovering/Resolving]
  - On and off phenomenon [Not Recovered/Not Resolved]
  - Urinary tract infection [Recovering/Resolving]
  - Discomfort [Recovering/Resolving]

NARRATIVE: CASE EVENT DATE: 20160820
